FAERS Safety Report 20360805 (Version 1)
Quarter: 2022Q1

REPORT INFORMATION
  Report Type: Spontaneous
  Country: GB (occurrence: None)
  Receive Date: 20220121
  Receipt Date: 20220121
  Transmission Date: 20220423
  Serious: Yes (Other)
  Sender: FDA-Public Use
  Company Number: 2015SE18664

PATIENT
  Age: 62 Year
  Sex: Female
  Weight: 55 kg

DRUGS (17)
  1. ACLIDINIUM BROMIDE [Suspect]
     Active Substance: ACLIDINIUM BROMIDE
     Route: 055
     Dates: start: 20150105
  2. AMLODIPINE [Concomitant]
     Active Substance: AMLODIPINE BESYLATE
     Dates: start: 20141002, end: 20141230
  3. ATORVASTATIN [Concomitant]
     Active Substance: ATORVASTATIN
     Dates: start: 20141023
  4. CANDESARTAN [Concomitant]
     Active Substance: CANDESARTAN
     Dates: start: 20141104, end: 20141202
  5. CARBOCYSTEINE [Concomitant]
     Active Substance: CARBOCYSTEINE
     Dates: start: 20141104, end: 20141202
  6. CLOPIDOGREL [Concomitant]
     Active Substance: CLOPIDOGREL BISULFATE
     Dates: start: 20141104, end: 20141202
  7. AMOXICILLIN\CLAVULANATE POTASSIUM [Concomitant]
     Active Substance: AMOXICILLIN\CLAVULANATE POTASSIUM
     Dates: start: 20141118, end: 20141125
  8. LANOLIN\LIGHT MINERAL OIL\PARAFFIN [Concomitant]
     Active Substance: LANOLIN\LIGHT MINERAL OIL\PARAFFIN
     Dates: start: 20141104, end: 20141204
  9. IBUPROFEN [Concomitant]
     Active Substance: IBUPROFEN
  10. IPRATROPIUM BROMIDE [Concomitant]
     Active Substance: IPRATROPIUM BROMIDE
     Dates: start: 20141104, end: 20141202
  11. MEBEVERINE HYDROCHLORIDE [Concomitant]
     Active Substance: MEBEVERINE HYDROCHLORIDE
     Dates: start: 20141104, end: 20141202
  12. OMEPRAZOLE [Concomitant]
     Active Substance: OMEPRAZOLE
     Dates: start: 20141104, end: 20150127
  13. ALBUTEROL [Concomitant]
     Active Substance: ALBUTEROL
     Dates: start: 20141104
  14. THIAMINE [Concomitant]
     Active Substance: THIAMINE
     Dates: start: 20141104, end: 20141202
  15. THIAMINE [Concomitant]
     Active Substance: THIAMINE
     Dates: start: 20150211
  16. VITAMIN B [Concomitant]
     Active Substance: VITAMIN B
     Dates: start: 20141020, end: 20141117
  17. VITAMIN B [Concomitant]
     Active Substance: VITAMIN B
     Dates: start: 20141230, end: 20150127

REACTIONS (1)
  - Palpitations [Recovered/Resolved]

NARRATIVE: CASE EVENT DATE: 20150213
